FAERS Safety Report 4616239-6 (Version None)
Quarter: 2005Q1

REPORT INFORMATION
  Report Type: 
  Country: None (occurrence: None)
  Receive Date: 20050321
  Receipt Date: 20050311
  Transmission Date: 20050727
  Serious: Yes (Hospitalization)
  Sender: FDA-Public Use
  Company Number: S05-USA-00319-01

PATIENT
  Age: 17 Year
  Sex: Female
  Weight: 59.8748 kg

DRUGS (3)
  1. LEXAPRO [Suspect]
     Indication: DEPRESSION
     Dosage: 5 MG QD PO
     Route: 048
     Dates: start: 20041201, end: 20050112
  2. ORTHO TRI-CYCLEN [Concomitant]
  3. ALBUTEROL [Concomitant]

REACTIONS (10)
  - BLOOD POTASSIUM DECREASED [None]
  - COMA [None]
  - CONVULSION [None]
  - FATIGUE [None]
  - LACERATION [None]
  - LETHARGY [None]
  - LOSS OF CONSCIOUSNESS [None]
  - MOUTH INJURY [None]
  - URINE BARBITURATES [None]
  - VOMITING [None]
